FAERS Safety Report 7111677-4 (Version None)
Quarter: 2010Q4

REPORT INFORMATION
  Report Type: 
  Country: None (occurrence: None)
  Receive Date: 20101118
  Receipt Date: 20101111
  Transmission Date: 20110411
  Serious: Yes (Hospitalization)
  Sender: FDA-Public Use
  Company Number: US-GILEAD-2010-0031036

PATIENT
  Sex: Male
  Weight: 76.272 kg

DRUGS (10)
  1. LETAIRIS [Suspect]
     Indication: PULMONARY ARTERIAL HYPERTENSION
     Route: 048
     Dates: start: 20090615, end: 20100622
  2. AMLODIPINE [Concomitant]
  3. LASIX [Concomitant]
  4. ALDACTONE [Concomitant]
  5. NORVIR [Concomitant]
  6. TRUVADA [Concomitant]
  7. ATAZANAVIR [Concomitant]
  8. SULFAMETHOXAZOLE AND TRIMETHOPRIM [Concomitant]
  9. FLUCONAZOLE [Concomitant]
  10. COMBIVENT [Concomitant]

REACTIONS (1)
  - CEREBROVASCULAR ACCIDENT [None]
